FAERS Safety Report 4477318-X (Version None)
Quarter: 2004Q4

REPORT INFORMATION
  Report Type: 
  Country: None (occurrence: None)
  Receive Date: 20041014
  Receipt Date: 20040630
  Transmission Date: 20050328
  Serious: Yes (Hospitalization)
  Sender: FDA-Public Use
  Company Number: US-JNJFOC-20040900337

PATIENT
  Age: 76 Year
  Sex: Female

DRUGS (8)
  1. ACETAMINOPHEN [Suspect]
     Indication: RHEUMATOID ARTHRITIS
     Dosage: 3000 TO 4000 MG QD
     Dates: start: 20040501, end: 20040601
  2. LIPITOR [Concomitant]
  3. ASPIRIN [Concomitant]
  4. SYNTHROID [Concomitant]
  5. NEXIUM [Concomitant]
  6. LIBRAX [Concomitant]
  7. INDERAL [Concomitant]
  8. NEURONTIN [Concomitant]

REACTIONS (1)
  - DYSPEPSIA [None]
